FAERS Safety Report 7864815-X (Version None)
Quarter: 2011Q4

REPORT INFORMATION
  Report Type: 
  Country: None (occurrence: None)
  Receive Date: 20111028
  Receipt Date: 20110502
  Transmission Date: 20120403
  Serious: No
  Sender: FDA-Public Use
  Company Number: US-GLAXOSMITHKLINE-A0870827A

PATIENT
  Age: 58 Year
  Sex: Male

DRUGS (10)
  1. PRILOSEC [Concomitant]
  2. PREVACID [Concomitant]
  3. ASPIRIN [Concomitant]
  4. UNSPECIFIED INHALER [Concomitant]
  5. ADVAIR DISKUS 100/50 [Suspect]
     Indication: ASTHMA
     Dosage: 1PUFF TWICE PER DAY
     Route: 055
     Dates: start: 20060401
  6. LIPITOR [Concomitant]
  7. FLUTICASONE PROPIONATE [Concomitant]
  8. SINGULAIR [Concomitant]
  9. DIOVAN [Concomitant]
  10. CENTRUM MULTIVITAMIN [Concomitant]

REACTIONS (4)
  - DRUG ADMINISTRATION ERROR [None]
  - RHINORRHOEA [None]
  - DYSPHONIA [None]
  - CANDIDIASIS [None]
